FAERS Safety Report 23284472 (Version 1)
Quarter: 2023Q4

REPORT INFORMATION
  Report Type: Spontaneous
  Country: US (occurrence: US)
  Receive Date: 20231211
  Receipt Date: 20231211
  Transmission Date: 20240110
  Serious: No
  Sender: FDA-Public Use
  Company Number: US-JUBILANT PHARMA LTD-2023US000990

PATIENT
  Sex: Female

DRUGS (2)
  1. HICON [Suspect]
     Active Substance: SODIUM IODIDE I-131
     Indication: Thyroid therapy
     Dosage: 7.5 MCI, SINGLE DOSE
     Dates: start: 20230815, end: 20230815
  2. HICON [Suspect]
     Active Substance: SODIUM IODIDE I-131
     Dosage: 7.5 MCI, SINGLE DOSE
     Dates: start: 20230815, end: 20230815

REACTIONS (2)
  - Rash pruritic [Unknown]
  - Expired product administered [Unknown]

NARRATIVE: CASE EVENT DATE: 20230815
